FAERS Safety Report 7946724-0 (Version None)
Quarter: 2011Q4

REPORT INFORMATION
  Report Type: 
  Country: None (occurrence: None)
  Receive Date: 20111125
  Receipt Date: 20111114
  Transmission Date: 20120403
  Serious: Yes (Hospitalization, Disabling)
  Sender: FDA-Public Use
  Company Number: 2011MA016666

PATIENT
  Age: 65 Year
  Sex: Male

DRUGS (8)
  1. LYRICA [Suspect]
     Indication: ABDOMINAL PAIN
     Dosage: 300 MG;BID
  2. TRAMADOL HYDROCHLORIDE [Suspect]
     Dosage: 100 MG;TID
  3. FLUOXETINE [Concomitant]
  4. TARGINACT PROLONGED RELEASE (NO PREF. NAME) [Suspect]
     Dosage: 5 MG;TID
  5. FEVERALL [Suspect]
     Dosage: 1 G;TID
  6. ORAMORPH SR [Suspect]
     Dosage: 15 MG;TID
  7. METOCLOPRAMIDE [Concomitant]
  8. FENTANYL [Suspect]
     Dosage: 1 DF;TIW

REACTIONS (4)
  - CARDIO-RESPIRATORY ARREST [None]
  - MUSCLE SPASMS [None]
  - PAIN [None]
  - ABDOMINAL PAIN [None]
